FAERS Safety Report 19560572 (Version 3)
Quarter: 2021Q3

REPORT INFORMATION
  Report Type: Spontaneous
  Country: ES (occurrence: DE)
  Receive Date: 20210716
  Receipt Date: 20210902
  Transmission Date: 20211014
  Serious: Yes (Death, Hospitalization, Other)
  Sender: FDA-Public Use
  Company Number: DE-AUROBINDO-AUR-APL-2021-029728

PATIENT
  Age: 93 Year
  Sex: Female
  Weight: 42 kg

DRUGS (17)
  1. MIDAZOLAM SOLUTION FOR INJECTION [Suspect]
     Active Substance: MIDAZOLAM
     Indication: ANAESTHESIA
     Dosage: 1 MILLIGRAM, ONCE A DAY TOGETHER WITH NACL 0.9%)
     Route: 042
     Dates: start: 20190802
  2. PANTOZOLE [Suspect]
     Active Substance: PANTOPRAZOLE SODIUM
     Indication: PRODUCT USED FOR UNKNOWN INDICATION
     Dosage: 80 MILLIGRAM, ONCE A DAY
     Route: 042
     Dates: start: 20190802
  3. RINGERS SOLUTION [Concomitant]
     Active Substance: CALCIUM CHLORIDE\POTASSIUM CHLORIDE\SODIUM CHLORIDE
     Indication: PRODUCT USED FOR UNKNOWN INDICATION
     Dosage: 1500 MILLILITER, ONCE A DAY (AS PERMANENT DRIP)
     Route: 042
     Dates: start: 20190802
  4. ATROPINE. [Suspect]
     Active Substance: ATROPINE
     Indication: PRODUCT USED FOR UNKNOWN INDICATION
     Dosage: UNK (1 AMPOULE)
     Route: 065
     Dates: start: 20190802
  5. SUFENTA [Suspect]
     Active Substance: SUFENTANIL CITRATE
     Indication: PRODUCT USED FOR UNKNOWN INDICATION
     Dosage: UNK (TOGETHER WITH NACL 0.9%)
     Route: 065
     Dates: start: 20190802
  6. ARTERENOL [Suspect]
     Active Substance: NOREPINEPHRINE HYDROCHLORIDE, (+/-)-
     Indication: PRODUCT USED FOR UNKNOWN INDICATION
     Dosage: UNK (TOGETHER WITH NACL 0.9%)
     Route: 065
     Dates: start: 20190802
  7. SODIUM BICARBONATE. [Concomitant]
     Active Substance: SODIUM BICARBONATE
     Indication: PRODUCT USED FOR UNKNOWN INDICATION
     Dosage: 400 MILLILITER, ONCE A DAY
     Route: 065
  8. PANTOZOLE [Suspect]
     Active Substance: PANTOPRAZOLE SODIUM
     Dosage: 40 MILLIGRAM, ONCE A DAY
     Route: 065
  9. UNACID (SULTAMICILLIN TOSILATE) [Suspect]
     Active Substance: SULTAMICILLIN TOSYLATE
     Indication: PRODUCT USED FOR UNKNOWN INDICATION
     Dosage: 6 GRAM, ONCE A DAY
     Route: 042
  10. UNACID (SULTAMICILLIN TOSILATE) [Suspect]
     Active Substance: SULTAMICILLIN TOSYLATE
     Dosage: 3 GRAM
     Route: 042
  11. SODIUM CHLORIDE. [Concomitant]
     Active Substance: SODIUM CHLORIDE
     Indication: PRODUCT USED FOR UNKNOWN INDICATION
     Dosage: UNK
     Route: 065
  12. EPINEPHRINE. [Suspect]
     Active Substance: EPINEPHRINE
     Indication: PRODUCT USED FOR UNKNOWN INDICATION
     Dosage: 10 MICROGRAM, 3 TIMES A DAY
     Route: 065
  13. KETAMINE [Suspect]
     Active Substance: KETAMINE
     Indication: ANAESTHESIA
     Dosage: UNK
     Route: 065
  14. AMIODARONE [Suspect]
     Active Substance: AMIODARONE
     Indication: PRODUCT USED FOR UNKNOWN INDICATION
     Dosage: UNK
     Route: 042
     Dates: start: 20190802
  15. TRANEXAMIC [Suspect]
     Active Substance: TRANEXAMIC ACID
     Indication: PRODUCT USED FOR UNKNOWN INDICATION
     Dosage: 1000 MILLIGRAM, ONCE A DAY
     Route: 042
     Dates: start: 20190802, end: 20190802
  16. SUPRARENIN [Suspect]
     Active Substance: EPINEPHRINE
     Indication: PRODUCT USED FOR UNKNOWN INDICATION
     Dosage: 3 MILLIGRAM, ONCE A DAY (4 AMPOULES)
     Route: 065
     Dates: start: 20190802
  17. AMIODARONE [Suspect]
     Active Substance: AMIODARONE
     Indication: PRODUCT USED FOR UNKNOWN INDICATION
     Dosage: UNK
     Route: 065

REACTIONS (20)
  - Abdominal distension [Recovered/Resolved]
  - Aspiration [Unknown]
  - Acute respiratory failure [Unknown]
  - Ventricular fibrillation [Unknown]
  - Toxicity to various agents [Fatal]
  - Poisoning [Recovered/Resolved]
  - Cardiogenic shock [Unknown]
  - Bundle branch block right [Unknown]
  - Haemorrhage [Unknown]
  - Myocardial infarction [Unknown]
  - Cardiac arrest [Fatal]
  - Haematemesis [Unknown]
  - Blood count abnormal [Recovered/Resolved]
  - Coagulopathy [Recovered/Resolved]
  - Acidosis [Unknown]
  - Gastrointestinal haemorrhage [Unknown]
  - Dysphonia [Recovered/Resolved]
  - Ischaemia [Unknown]
  - Anaemia [Recovered/Resolved]
  - Hepatic failure [Recovered/Resolved]

NARRATIVE: CASE EVENT DATE: 201907
